FAERS Safety Report 24180024 (Version 2)
Quarter: 2024Q3

REPORT INFORMATION
  Report Type: Spontaneous
  Country: US (occurrence: US)
  Receive Date: 20240806
  Receipt Date: 20240809
  Transmission Date: 20241016
  Serious: No
  Sender: CALLIDITAS THERAPEUTICS
  Company Number: US-Calliditas-2024CAL01353

PATIENT
  Age: 62 Year
  Sex: Male
  Weight: 85.7 kg

DRUGS (1)
  1. TARPEYO [Suspect]
     Active Substance: BUDESONIDE
     Indication: IgA nephropathy
     Route: 048
     Dates: start: 20240625

REACTIONS (5)
  - Diarrhoea [Unknown]
  - Flatulence [Recovered/Resolved]
  - COVID-19 [Unknown]
  - Myalgia [Unknown]
  - Blood pressure increased [Unknown]
